FAERS Safety Report 6200343-5 (Version None)
Quarter: 2009Q2

REPORT INFORMATION
  Report Type: 
  Country: None (occurrence: None)
  Receive Date: 20090522
  Receipt Date: 20090521
  Transmission Date: 20091009
  Serious: Yes (Death)
  Sender: FDA-Public Use
  Company Number: PHHO2009CN06440

PATIENT
  Sex: Male
  Weight: 58 kg

DRUGS (2)
  1. RAD 666 RAD+TAB [Suspect]
     Indication: NEOPLASM
     Dosage: 10 MG, BID
     Route: 048
     Dates: start: 20090419
  2. HYDROCHLOROTHIAZIDE [Concomitant]
     Indication: OEDEMA

REACTIONS (6)
  - COMA [None]
  - DEATH [None]
  - DISEASE PROGRESSION [None]
  - DRUG INEFFECTIVE [None]
  - DYSPNOEA [None]
  - FATIGUE [None]
